FAERS Safety Report 7554932-6 (Version None)
Quarter: 2011Q2

REPORT INFORMATION
  Report Type: 
  Country: None (occurrence: None)
  Receive Date: 20110617
  Receipt Date: 20110614
  Transmission Date: 20111010
  Serious: Yes (Other)
  Sender: FDA-Public Use
  Company Number: SK-PFIZER INC-2011086908

PATIENT
  Age: 27 Year
  Sex: Male

DRUGS (2)
  1. METHYLPREDNISOLONE [Suspect]
     Indication: DEMYELINATION
     Dosage: UNK
     Route: 042
  2. METHYLPREDNISOLONE [Suspect]
     Indication: PLEOCYTOSIS

REACTIONS (2)
  - CONCENTRIC SCLEROSIS [None]
  - HEMIPARESIS [None]
